FAERS Safety Report 24078803 (Version 2)
Quarter: 2024Q3

REPORT INFORMATION
  Report Type: Spontaneous
  Country: AM (occurrence: AM)
  Receive Date: 20240711
  Receipt Date: 20240718
  Transmission Date: 20241017
  Serious: Yes (Other)
  Sender: ROCHE
  Company Number: AM-ROCHE-10000018960

PATIENT
  Age: 71 Year
  Sex: Male

DRUGS (1)
  1. TECENTRIQ [Suspect]
     Active Substance: ATEZOLIZUMAB
     Indication: Metastatic squamous cell carcinoma
     Route: 050
     Dates: start: 202403

REACTIONS (3)
  - Pruritus [Unknown]
  - Lymphadenopathy [Unknown]
  - Lung neoplasm [Unknown]
